FAERS Safety Report 25330156 (Version 1)
Quarter: 2025Q2

REPORT INFORMATION
  Report Type: Spontaneous
  Country: US (occurrence: US)
  Receive Date: 20250519
  Receipt Date: 20250519
  Transmission Date: 20250717
  Serious: No
  Sender: BIOVITRUM
  Company Number: US-BIOVITRUM-2025-US-006866

PATIENT
  Age: 45 Year
  Sex: Female

DRUGS (19)
  1. VONJO [Suspect]
     Active Substance: PACRITINIB
     Indication: Myeloproliferative neoplasm
     Route: 048
     Dates: start: 20231115, end: 20250514
  2. AMOXICILLIN [Concomitant]
     Active Substance: AMOXICILLIN
     Indication: Product used for unknown indication
  3. ATORVASTSTIN [Concomitant]
     Indication: Product used for unknown indication
  4. BUPROPION HCL (WELLBUTRIN) [Concomitant]
     Indication: Product used for unknown indication
  5. CLYNDAMYCIN HCL [Concomitant]
     Indication: Product used for unknown indication
  6. COMPLETE B [Concomitant]
     Indication: Product used for unknown indication
  7. ENERGY BIODINE [Concomitant]
     Indication: Product used for unknown indication
  8. ENZYME POWER CAPSULE [Concomitant]
     Indication: Product used for unknown indication
  9. HEART HEALTHY SUPPLEMENT [Concomitant]
     Indication: Product used for unknown indication
  10. MAGNESIUM OXIDE [Concomitant]
     Active Substance: MAGNESIUM OXIDE
     Indication: Product used for unknown indication
  11. MULTIVITAMIN (DAILY MULTI-VITAMIN) [Concomitant]
     Indication: Product used for unknown indication
  12. IOHEXOL 9 MG IODINE/ML ORAL SOLUTION [Concomitant]
     Indication: Product used for unknown indication
  13. SERRA ENZYME [Concomitant]
     Indication: Product used for unknown indication
  14. PLANT VITAMIN C [Concomitant]
     Indication: Product used for unknown indication
  15. VITAMIN D3 [Concomitant]
     Active Substance: CHOLECALCIFEROL
     Indication: Product used for unknown indication
  16. MENAQUINONE 6 [Concomitant]
     Active Substance: MENAQUINONE 6
     Indication: Product used for unknown indication
  17. VITAMIN A [Concomitant]
     Active Substance: VITAMIN A
     Indication: Product used for unknown indication
  18. CALCIUM\MAGNESIUM [Concomitant]
     Active Substance: CALCIUM\MAGNESIUM
     Indication: Product used for unknown indication
  19. LACTOBACILLUS [LACTOBACILLUS ACIDOPHILUS] [Concomitant]
     Indication: Product used for unknown indication

REACTIONS (2)
  - Splenomegaly [Unknown]
  - Off label use [Recovered/Resolved]

NARRATIVE: CASE EVENT DATE: 20231115
